FAERS Safety Report 9886512 (Version 4)
Quarter: 2014Q1

REPORT INFORMATION
  Report Type: Spontaneous
  Country: JP (occurrence: JP)
  Receive Date: 20140210
  Receipt Date: 20140306
  Transmission Date: 20141002
  Serious: Yes (Hospitalization, Other)
  Sender: FDA-Public Use
  Company Number: JP-009507513-1402JPN003266

PATIENT
  Age: 61 Year
  Sex: Female

DRUGS (3)
  1. REBETOL [Suspect]
     Indication: HEPATITIS C
     Dosage: DAILY DOSE UNKNOWN
     Route: 048
     Dates: start: 201301
  2. PEGINTRON [Suspect]
     Indication: HEPATITIS C
     Dosage: DAILY DOSAGE UNKNOWN
     Route: 058
     Dates: start: 201301
  3. LEVOTHYROXINE SODIUM [Concomitant]
     Indication: THYROIDITIS CHRONIC
     Dosage: 75 MICROGRAM, DIVIDED DOSE FREQUENCY UNKNOWN,FORMULATION:POR
     Route: 048

REACTIONS (2)
  - Type 1 diabetes mellitus [Recovering/Resolving]
  - Diabetic ketoacidosis [Recovering/Resolving]
